FAERS Safety Report 6285239-5 (Version None)
Quarter: 2009Q3

REPORT INFORMATION
  Report Type: 
  Country: None (occurrence: None)
  Receive Date: 20090727
  Receipt Date: 20090720
  Transmission Date: 20100115
  Serious: Yes (Other)
  Sender: FDA-Public Use
  Company Number: GB-TEVA-202868ISR

PATIENT
  Age: 11 Year
  Sex: Female

DRUGS (2)
  1. RISPERIDONE [Suspect]
  2. ATOMOXETINE HCL [Interacting]
     Indication: ATTENTION DEFICIT/HYPERACTIVITY DISORDER

REACTIONS (3)
  - DRUG INEFFECTIVE [None]
  - DRUG INTERACTION [None]
  - SYNCOPE [None]
